FAERS Safety Report 10045570 (Version 2)
Quarter: 2014Q2

REPORT INFORMATION
  Report Type: Spontaneous
  Country: US (occurrence: US)
  Receive Date: 20140328
  Receipt Date: 20140530
  Transmission Date: 20141212
  Serious: Yes (Other)
  Sender: FDA-Public Use
  Company Number: US-FRI-1000065947

PATIENT
  Age: 50 Year
  Sex: Female

DRUGS (3)
  1. SAPHRIS [Suspect]
     Indication: BIPOLAR DISORDER
     Dosage: 10 MG
     Route: 060
     Dates: start: 201101
  2. SAPHRIS [Suspect]
     Dosage: 5 MG
     Route: 060
  3. HALDOL [Concomitant]

REACTIONS (2)
  - Borderline glaucoma [Not Recovered/Not Resolved]
  - Ocular hypertension [Not Recovered/Not Resolved]
